FAERS Safety Report 5121022-1 (Version None)
Quarter: 2006Q4

REPORT INFORMATION
  Report Type: 
  Country: None (occurrence: None)
  Receive Date: 20061002
  Receipt Date: 20060915
  Transmission Date: 20070319
  Serious: Yes (Hospitalization)
  Sender: FDA-Public Use
  Company Number: 229519

PATIENT
  Age: 54 Year
  Sex: Male
  Weight: 77 kg

DRUGS (4)
  1. AVASTIN [Suspect]
     Indication: COLON CANCER
     Dosage: 575 MG, Q3W, INTRAVENOUS
     Route: 042
     Dates: start: 20051202, end: 20060612
  2. OXALIPLATIN [Suspect]
     Indication: COLON CANCER
     Dosage: 170 MG, Q2W, INTRAVENOUS
     Route: 042
     Dates: start: 20051202, end: 20060315
  3. FLUOROURACIL [Suspect]
     Indication: COLON CANCER
     Dosage: 2000 MG, Q2W, INTRAVENOUS
     Route: 042
     Dates: start: 20051202, end: 20060315
  4. LEUCOVORIN                      (LEUCOVORIN CALCIUM) [Suspect]
     Indication: COLON CANCER
     Dosage: 400 MG, Q2W, INTRAVENOUS
     Route: 042
     Dates: start: 20051202, end: 20060315

REACTIONS (4)
  - CARDIAC FAILURE [None]
  - FIBRIN D DIMER INCREASED [None]
  - MITRAL VALVE INCOMPETENCE [None]
  - VASCULAR INSUFFICIENCY [None]
